FAERS Safety Report 10314397 (Version 4)
Quarter: 2015Q2

REPORT INFORMATION
  Report Type: Report from Study
  Country: JP (occurrence: JP)
  Receive Date: 20140718
  Receipt Date: 20150625
  Transmission Date: 20150821
  Serious: Yes (Hospitalization)
  Sender: FDA-Public Use
  Company Number: JP-AMGEN-JPNCT2014053853

PATIENT
  Age: 79 Year
  Sex: Female
  Weight: 45 kg

DRUGS (13)
  1. BASEN                              /01290601/ [Concomitant]
     Active Substance: VOGLIBOSE
     Dosage: 0.6 MG, QD
     Route: 048
  2. AMLODIPINE                         /00972402/ [Concomitant]
     Active Substance: AMLODIPINE BESYLATE
     Dosage: 5 MG, QD
     Route: 048
  3. BLOPRESS [Concomitant]
     Active Substance: CANDESARTAN CILEXETIL
     Dosage: 8 MG, QD
     Route: 048
  4. TANATRIL [Concomitant]
     Active Substance: IMIDAPRIL
     Dosage: 5 MG, QD
     Route: 048
     Dates: start: 20131227
  5. AMARYL [Concomitant]
     Active Substance: GLIMEPIRIDE
     Dosage: 2 MG, QD
     Route: 048
  6. FLUITRAN [Concomitant]
     Active Substance: TRICHLORMETHIAZIDE
     Dosage: 2 MG, QD
     Route: 048
  7. LANTUS [Concomitant]
     Active Substance: INSULIN GLARGINE
     Dosage: 6 IU, QD
     Route: 058
     Dates: start: 20130806
  8. AVASTIN [Concomitant]
     Active Substance: BEVACIZUMAB
     Dosage: UNK
     Route: 065
     Dates: start: 20130709
  9. LIPITOR [Concomitant]
     Active Substance: ATORVASTATIN CALCIUM
     Dosage: 10 MG, QD
     Route: 048
  10. DENOSUMAB [Suspect]
     Active Substance: DENOSUMAB
     Indication: METASTASES TO BONE
     Dosage: 120 MG, UNK
     Route: 058
     Dates: start: 20130219, end: 20140515
  11. DENOTAS [Concomitant]
     Active Substance: CALCIUM CARBONATE\CHOLECALCIFEROL\MAGNESIUM CARBONATE
     Dosage: 2 DF, QD
     Dates: start: 20140120, end: 20140515
  12. GLACTIV [Concomitant]
     Active Substance: SITAGLIPTIN
     Dosage: 100 MG, QD
     Route: 048
  13. PACLITAXEL. [Concomitant]
     Active Substance: PACLITAXEL
     Dosage: UNK
     Route: 065
     Dates: start: 20130709

REACTIONS (2)
  - Hypocalcaemia [Not Recovered/Not Resolved]
  - Abscess jaw [Recovering/Resolving]

NARRATIVE: CASE EVENT DATE: 20140524
